FAERS Safety Report 5274210-8 (Version None)
Quarter: 2007Q1

REPORT INFORMATION
  Report Type: 
  Country: None (occurrence: None)
  Receive Date: 20070323
  Receipt Date: 20070323
  Transmission Date: 20070707
  Serious: Yes (Other)
  Sender: FDA-Public Use
  Company Number: ES-ROXANE LABORATORIES, INC-2007-BP-04008RO

PATIENT
  Age: 39 Year
  Sex: Female

DRUGS (7)
  1. DEXAMETHASONE [Suspect]
     Indication: IMMUNOLOGY TEST
     Route: 048
  2. METHYLPREDNISOLONE 16MG TAB [Suspect]
     Indication: IMMUNOLOGY TEST
     Route: 048
  3. VENTOLIN [Concomitant]
     Indication: ASTHMA
  4. FLIXOTIDE [Concomitant]
     Indication: ASTHMA
  5. SINGULAIR [Concomitant]
     Indication: ASTHMA
  6. OMEPRAZOLE [Concomitant]
  7. CAOSINA [Concomitant]

REACTIONS (1)
  - BRONCHOSPASM [None]
